FAERS Safety Report 23472434 (Version 4)
Quarter: 2025Q1

REPORT INFORMATION
  Report Type: Report from Study
  Country: US (occurrence: US)
  Receive Date: 20240202
  Receipt Date: 20250103
  Transmission Date: 20250409
  Serious: Yes (Other)
  Sender: NOVARTIS
  Company Number: US-002147023-NVSC2024US019396

PATIENT
  Sex: Male

DRUGS (1)
  1. ENTRESTO [Suspect]
     Active Substance: SACUBITRIL\VALSARTAN
     Indication: Atrial fibrillation
     Route: 065
     Dates: start: 2023

REACTIONS (3)
  - Atrial fibrillation [Unknown]
  - Dysphonia [Unknown]
  - Sleep apnoea syndrome [Unknown]
